FAERS Safety Report 6110910-5 (Version None)
Quarter: 2009Q1

REPORT INFORMATION
  Report Type: 
  Country: None (occurrence: None)
  Receive Date: 20090311
  Receipt Date: 20090302
  Transmission Date: 20090719
  Serious: Yes (Hospitalization)
  Sender: FDA-Public Use
  Company Number: US-BIOGENIDEC-2009BI001130

PATIENT
  Age: 49 Year
  Sex: Female

DRUGS (2)
  1. TYSABRI [Suspect]
     Indication: MULTIPLE SCLEROSIS
     Route: 042
     Dates: start: 20081104
  2. TYLENOL [Concomitant]
     Indication: ARTHRITIS

REACTIONS (14)
  - ARTHRITIS [None]
  - DEPRESSED MOOD [None]
  - DEPRESSION [None]
  - DYSPNOEA [None]
  - FATIGUE [None]
  - HEADACHE [None]
  - HYPERSOMNIA [None]
  - INCREASED TENDENCY TO BRUISE [None]
  - INSOMNIA [None]
  - MALAISE [None]
  - PAIN [None]
  - STRESS [None]
  - SUICIDAL IDEATION [None]
  - WEIGHT INCREASED [None]
